FAERS Safety Report 7166302-3 (Version None)
Quarter: 2010Q4

REPORT INFORMATION
  Report Type: 
  Country: None (occurrence: None)
  Receive Date: 20101201
  Receipt Date: 20101117
  Transmission Date: 20110411
  Serious: Yes (Other)
  Sender: FDA-Public Use
  Company Number: 020403

PATIENT
  Age: 59 Year
  Sex: Male

DRUGS (1)
  1. CIMZIA [Suspect]
     Indication: CROHN'S DISEASE
     Dosage: (400 MG 1X/30 DAYS SUBCUTANEOUS)
     Route: 058
     Dates: start: 20100720, end: 20101006

REACTIONS (2)
  - RASH [None]
  - URTICARIA [None]
